FAERS Safety Report 5272681-4 (Version None)
Quarter: 2007Q1

REPORT INFORMATION
  Report Type: 
  Country: None (occurrence: None)
  Receive Date: 20070316
  Receipt Date: 20070316
  Transmission Date: 20070707
  Serious: Yes (Hospitalization)
  Sender: FDA-Public Use
  Company Number: None

PATIENT
  Sex: Male
  Weight: 99.5 kg

DRUGS (2)
  1. WARFARIN SODIUM [Suspect]
     Indication: ATRIAL FIBRILLATION
     Dosage: 4 MG DAILY (PO)
     Route: 048
     Dates: start: 19990101, end: 20060101
  2. SIMVASTATIN [Concomitant]

REACTIONS (6)
  - AMNESIA [None]
  - CEREBRAL HAEMATOMA [None]
  - LETHARGY [None]
  - MENTAL IMPAIRMENT [None]
  - PERSONALITY CHANGE [None]
  - PHYSICAL EXAMINATION ABNORMAL [None]
